FAERS Safety Report 4309707-8 (Version None)
Quarter: 2004Q1

REPORT INFORMATION
  Report Type: 
  Country: None (occurrence: None)
  Receive Date: 20040301
  Receipt Date: 20040218
  Transmission Date: 20041129
  Serious: Yes (Death)
  Sender: FDA-Public Use
  Company Number: 163-20785-03110174

PATIENT
  Age: 53 Year
  Sex: Male

DRUGS (3)
  1. THALOMID [Suspect]
     Indication: MALIGNANT MELANOMA
     Dosage: 300 MG, DAILY, ORAL
     Route: 048
     Dates: start: 20030901, end: 20031201
  2. TEMODAR [Concomitant]
  3. DECADRON [Concomitant]

REACTIONS (3)
  - MALIGNANT MELANOMA [None]
  - MALIGNANT NEOPLASM PROGRESSION [None]
  - RASH MORBILLIFORM [None]
